FAERS Safety Report 19966440 (Version 1)
Quarter: 2021Q4

REPORT INFORMATION
  Report Type: Report from Study
  Country: US (occurrence: US)
  Receive Date: 20211019
  Receipt Date: 20211019
  Transmission Date: 20220304
  Serious: Yes (Hospitalization)
  Sender: FDA-Public Use
  Company Number: US-UCBSA-2021047860

PATIENT
  Age: 57 Year
  Sex: Female

DRUGS (2)
  1. CERTOLIZUMAB PEGOL [Suspect]
     Active Substance: CERTOLIZUMAB PEGOL
     Indication: Rheumatoid arthritis
     Dosage: 400 MILLIGRAM, EV 4 WEEKS
     Dates: start: 20210623
  2. COVID-19 VACCINE [Concomitant]
     Indication: COVID-19 immunisation

REACTIONS (2)
  - COVID-19 pneumonia [Not Recovered/Not Resolved]
  - COVID-19 immunisation [Unknown]

NARRATIVE: CASE EVENT DATE: 20210101
